FAERS Safety Report 16573672 (Version 1)
Quarter: 2019Q3

REPORT INFORMATION
  Report Type: Report from Study
  Country: BR (occurrence: BR)
  Receive Date: 20190715
  Receipt Date: 20190715
  Transmission Date: 20191004
  Serious: Yes (Other)
  Sender: FDA-Public Use
  Company Number: BR-UCBSA-2019029044

PATIENT
  Sex: Male
  Weight: 90 kg

DRUGS (4)
  1. LEVETIRACETAM. [Suspect]
     Active Substance: LEVETIRACETAM
     Indication: OFF LABEL USE
  2. PRIMIDONA [Concomitant]
     Active Substance: PRIMIDONE
     Indication: ARRHYTHMIA
     Dosage: UNK
     Route: 048
     Dates: start: 2004
  3. LEVETIRACETAM. [Suspect]
     Active Substance: LEVETIRACETAM
     Indication: ARRHYTHMIA
     Dosage: 750 MILLIGRAM, 3X/DAY (TID)
     Route: 048
     Dates: start: 2016
  4. LAMOTRIGINA [Concomitant]
     Active Substance: LAMOTRIGINE
     Indication: ARRHYTHMIA
     Dosage: UNK
     Route: 048
     Dates: start: 2017

REACTIONS (2)
  - Off label use [Unknown]
  - Amyotrophic lateral sclerosis [Unknown]

NARRATIVE: CASE EVENT DATE: 2016
